FAERS Safety Report 7573661-6 (Version None)
Quarter: 2011Q2

REPORT INFORMATION
  Report Type: 
  Country: None (occurrence: None)
  Receive Date: 20110621
  Receipt Date: 20110609
  Transmission Date: 20111010
  Serious: Yes (Hospitalization)
  Sender: FDA-Public Use
  Company Number: A0931653A

PATIENT
  Age: 46 Year
  Sex: Female
  Weight: 160.6 kg

DRUGS (5)
  1. CALTRATE 600 + D) [Suspect]
     Indication: PRODUCT USED FOR UNKNOWN INDICATION
     Dates: start: 20090801
  2. ALPRAZOLAM [Concomitant]
  3. CALCIUM CARBONATE [Suspect]
     Indication: DYSPEPSIA
     Dates: start: 20090901
  4. BACLOFEN [Concomitant]
  5. INTERFERON BETA-1A [Suspect]
     Indication: MULTIPLE SCLEROSIS
     Dosage: 44 MCG THREE TIMES PER WEEK, SUBCUTANEOUS
     Route: 058
     Dates: start: 20051012

REACTIONS (6)
  - FALL [None]
  - HYPERCALCAEMIA [None]
  - DIZZINESS [None]
  - HYPOKALAEMIA [None]
  - STRESS [None]
  - DYSPEPSIA [None]
